FAERS Safety Report 7477069-3 (Version None)
Quarter: 2011Q2

REPORT INFORMATION
  Report Type: 
  Country: None (occurrence: None)
  Receive Date: 20110512
  Receipt Date: 20110510
  Transmission Date: 20111010
  Serious: Yes (Other)
  Sender: FDA-Public Use
  Company Number: US-ABBOTT-11P-163-0709663-00

PATIENT
  Sex: Male
  Weight: 117.13 kg

DRUGS (15)
  1. NIASPAN [Suspect]
     Dosage: PO QHS
     Dates: start: 20110228
  2. NASACORT [Concomitant]
     Indication: PRODUCT USED FOR UNKNOWN INDICATION
     Dosage: 2 SPRAYS EACH NOSTRIL QAM
     Dates: start: 20100129
  3. LEXAPRO [Concomitant]
     Indication: PRODUCT USED FOR UNKNOWN INDICATION
     Dosage: 20 MG TABS: 1/2 TAB QAM
     Dates: start: 20110228
  4. DIOVAN [Concomitant]
     Indication: PRODUCT USED FOR UNKNOWN INDICATION
     Dosage: 80 MG TABS: 1/2 TAB DAILY
     Dates: start: 20110111
  5. NITROGLYCERIN [Concomitant]
     Indication: CHEST PAIN
     Route: 060
     Dates: start: 20080625
  6. CALCIUM WITH D3 [Concomitant]
     Indication: PRODUCT USED FOR UNKNOWN INDICATION
     Dosage: 600-200MG-UNIT 1 TAB DAILY
     Dates: start: 20110228
  7. NIASPAN [Suspect]
     Indication: HIGH DENSITY LIPOPROTEIN DECREASED
     Dosage: PO QHS
     Dates: start: 20100301
  8. ADVAIR DISKUS 100/50 [Concomitant]
     Indication: PRODUCT USED FOR UNKNOWN INDICATION
     Dosage: 2 PUFFS BID: 100-50 MCG/DOSE
     Dates: start: 20100129
  9. CO Q-10 [Concomitant]
     Indication: PRODUCT USED FOR UNKNOWN INDICATION
     Dates: start: 20091013
  10. VIT D [Concomitant]
     Indication: PRODUCT USED FOR UNKNOWN INDICATION
     Dates: start: 20110228
  11. IMDUR [Concomitant]
     Indication: PRODUCT USED FOR UNKNOWN INDICATION
     Dosage: 1 TAB DAILY AM
     Dates: start: 20101202
  12. PLAVIX [Concomitant]
     Indication: PRODUCT USED FOR UNKNOWN INDICATION
     Dosage: 75 MG TABS : ONE TABLET DAILY AM
     Dates: start: 20100215
  13. TOPROL-XL [Concomitant]
     Indication: PRODUCT USED FOR UNKNOWN INDICATION
     Dosage: 50 MG TB24: ONE TABLET QAM
     Dates: start: 20091013
  14. CPAP SET AT 13 [Concomitant]
     Indication: PRODUCT USED FOR UNKNOWN INDICATION
     Dosage: AT NIGHT WHILE ASLEEP
     Dates: start: 20100831
  15. ZOCOR [Concomitant]
     Indication: PRODUCT USED FOR UNKNOWN INDICATION
     Dosage: ONE TAB DAILY
     Dates: start: 20110228

REACTIONS (3)
  - GALLBLADDER DISORDER [None]
  - FLUSHING [None]
  - RASH [None]
